FAERS Safety Report 20341235 (Version 1)
Quarter: 2022Q1

REPORT INFORMATION
  Report Type: Spontaneous
  Country: US (occurrence: US)
  Receive Date: 20220117
  Receipt Date: 20220117
  Transmission Date: 20220423
  Serious: No
  Sender: FDA-Public Use
  Company Number: US-PERRIGO-21US030271

PATIENT
  Age: 69 Year
  Sex: Female
  Weight: 54.422 kg

DRUGS (6)
  1. METRONIDAZOLE [Suspect]
     Active Substance: METRONIDAZOLE
     Indication: Vaginitis gardnerella
     Dosage: 37.5 MG, NIGHTLY
     Route: 067
     Dates: start: 20211022, end: 20211024
  2. PROBIOTIC                          /06395501/ [Concomitant]
     Indication: Routine health maintenance
     Dosage: UNK
     Route: 065
     Dates: start: 20211012
  3. LOSARTAN [Concomitant]
     Active Substance: LOSARTAN
     Indication: Hypertension
     Dosage: UNK
     Route: 065
  4. ASPIRIN                            /00002701/ [Concomitant]
     Indication: Vascular device user
     Dosage: UNK
     Route: 065
  5. METOPROLOL [Concomitant]
     Active Substance: METOPROLOL
     Indication: Hypertension
     Dosage: UNK
     Route: 065
  6. ESTRACE [Concomitant]
     Active Substance: ESTRADIOL
     Indication: Routine health maintenance
     Dosage: UNK
     Route: 065
     Dates: start: 2018

REACTIONS (6)
  - Burning sensation [Not Recovered/Not Resolved]
  - Feeling hot [Not Recovered/Not Resolved]
  - Flushing [Not Recovered/Not Resolved]
  - Palpitations [Unknown]
  - Thirst [Not Recovered/Not Resolved]
  - Incorrect dose administered [Recovered/Resolved]

NARRATIVE: CASE EVENT DATE: 20211022
